FAERS Safety Report 6460942-2 (Version None)
Quarter: 2009Q4

REPORT INFORMATION
  Report Type: 
  Country: None (occurrence: None)
  Receive Date: 20091120
  Receipt Date: 20091109
  Transmission Date: 20100525
  Serious: Yes (Hospitalization)
  Sender: FDA-Public Use
  Company Number: 2009AL007135

PATIENT
  Age: 5 Year
  Sex: Female

DRUGS (1)
  1. SULFATRIM AND SULFATRIM PEDIATRIC SUSPENSION   (200/40/5) [Suspect]
     Indication: PROPHYLAXIS

REACTIONS (10)
  - AUTOMATISM [None]
  - CENTRAL NERVOUS SYSTEM NECROSIS [None]
  - CEREBRAL ISCHAEMIA [None]
  - CORTICAL LAMINAR NECROSIS [None]
  - DEMYELINATION [None]
  - DEPRESSED LEVEL OF CONSCIOUSNESS [None]
  - GRAND MAL CONVULSION [None]
  - HAEMOLYTIC ANAEMIA [None]
  - MASTICATION DISORDER [None]
  - URINARY TRACT INFECTION [None]
